FAERS Safety Report 4927718-6 (Version None)
Quarter: 2006Q1

REPORT INFORMATION
  Report Type: 
  Country: None (occurrence: None)
  Receive Date: 20060222
  Receipt Date: 20060209
  Transmission Date: 20060701
  Serious: Yes (Hospitalization)
  Sender: FDA-Public Use
  Company Number: 2006P1000110

PATIENT
  Age: 41 Year
  Sex: Male
  Weight: 85 kg

DRUGS (12)
  1. RETEPLASE (RETEPLASE) [Suspect]
     Indication: ACUTE MYOCARDIAL INFARCTION
     Dosage: SEE IMAGE
     Route: 042
     Dates: start: 20041110, end: 20041110
  2. RETEPLASE (RETEPLASE) [Suspect]
     Indication: ACUTE MYOCARDIAL INFARCTION
     Dosage: SEE IMAGE
     Route: 042
     Dates: start: 20041110, end: 20041110
  3. ABCIXIMAB (ABCIXIMAB) [Suspect]
     Indication: ACUTE MYOCARDIAL INFARCTION
     Dosage: SEE IMAGE
     Route: 042
     Dates: start: 20041110, end: 20041110
  4. ABCIXIMAB (ABCIXIMAB) [Suspect]
     Indication: ACUTE MYOCARDIAL INFARCTION
     Dosage: SEE IMAGE
     Route: 042
     Dates: start: 20041110, end: 20041110
  5. HEPARIN [Concomitant]
  6. ASPIRIN [Concomitant]
  7. BETA BLOCKING AGENTS [Concomitant]
  8. ACE INHIBITOR NOS [Concomitant]
  9. CHOLESTEROL - AND TRIGLYCERIDE REDUCERS [Concomitant]
  10. CLOPIDOGREL [Concomitant]
  11. HEPARIN [Concomitant]
  12. . [Concomitant]

REACTIONS (1)
  - CORONARY ARTERY STENOSIS [None]
